FAERS Safety Report 7708413-7 (Version None)
Quarter: 2011Q3

REPORT INFORMATION
  Report Type: 
  Country: None (occurrence: None)
  Receive Date: 20110825
  Receipt Date: 20110815
  Transmission Date: 20111222
  Serious: Yes (Other)
  Sender: FDA-Public Use
  Company Number: US-ELI_LILLY_AND_COMPANY-US201108005811

PATIENT
  Age: 13 Year
  Sex: Male

DRUGS (4)
  1. ABILIFY [Concomitant]
     Indication: BIPOLAR DISORDER
     Dosage: 2.5 MG, UNKNOWN
  2. STRATTERA [Suspect]
     Dosage: 40 MG, UNKNOWN
     Dates: end: 20110801
  3. ABILIFY [Concomitant]
     Dosage: 5 MG, UNKNOWN
  4. STRATTERA [Suspect]
     Indication: ATTENTION DEFICIT/HYPERACTIVITY DISORDER
     Dosage: 25 MG, UNKNOWN
     Dates: start: 20110701

REACTIONS (3)
  - SUICIDAL IDEATION [None]
  - AGITATION [None]
  - IRRITABILITY [None]
